FAERS Safety Report 6864563-9 (Version None)
Quarter: 2010Q3

REPORT INFORMATION
  Report Type: 
  Country: None (occurrence: None)
  Receive Date: 20100721
  Receipt Date: 20080327
  Transmission Date: 20110219
  Serious: No
  Sender: FDA-Public Use
  Company Number: US-PFIZER INC-2008028604

PATIENT
  Sex: Male
  Weight: 68.181 kg

DRUGS (2)
  1. CHANTIX [Suspect]
     Indication: SMOKING CESSATION THERAPY
     Dates: start: 20080201
  2. CELEXA [Concomitant]

REACTIONS (4)
  - ABNORMAL DREAMS [None]
  - HEADACHE [None]
  - INSOMNIA [None]
  - PAIN [None]
